FAERS Safety Report 6223053-7 (Version None)
Quarter: 2009Q2

REPORT INFORMATION
  Report Type: 
  Country: None (occurrence: None)
  Receive Date: 20090609
  Receipt Date: 20090527
  Transmission Date: 20091009
  Serious: Yes (Hospitalization)
  Sender: FDA-Public Use
  Company Number: 2009-197704-NL

PATIENT
  Age: 78 Year
  Sex: Female

DRUGS (10)
  1. MIRTAZAPINE [Suspect]
     Indication: DEPRESSION
     Dosage: 15 MG ORAL
     Route: 048
     Dates: start: 20090310, end: 20090314
  2. FENTANYL [Suspect]
     Indication: PAIN
     Dosage: 1 DF TRANSDERMAL
     Route: 062
     Dates: start: 20090217, end: 20090314
  3. DI-ANTALVIC [Suspect]
     Indication: PAIN
     Dosage: 3 DF
     Dates: start: 20090127, end: 20090314
  4. CLONAZEPAM [Suspect]
     Indication: PAIN
     Dates: start: 20090217
  5. ACARBOSE [Concomitant]
  6. DIGOXIN [Concomitant]
  7. METFORMIN HYDROCHLORIDE [Concomitant]
  8. CLOPIDOGREL SULFATE [Concomitant]
  9. SPIRONOLACTONE [Concomitant]
  10. PRISTINAMYCIN [Concomitant]

REACTIONS (8)
  - CEREBRAL ATROPHY [None]
  - CEREBRAL ISCHAEMIA [None]
  - CONFUSIONAL STATE [None]
  - DISORIENTATION [None]
  - INCOHERENT [None]
  - LEUKOARAIOSIS [None]
  - MORBID THOUGHTS [None]
  - SPEECH DISORDER [None]
